FAERS Safety Report 15122798 (Version 1)
Quarter: 2018Q3

REPORT INFORMATION
  Report Type: Spontaneous
  Country: US (occurrence: US)
  Receive Date: 20180613
  Receipt Date: 20180613
  Transmission Date: 20181010
  Serious: Yes (Other)
  Sender: FDA-Public Use
  Company Number: None

PATIENT
  Age: 59 Year
  Sex: Male
  Weight: 61.23 kg

DRUGS (5)
  1. ROSACEA MEDS [Concomitant]
  2. PRILOSEC [Concomitant]
     Active Substance: OMEPRAZOLE MAGNESIUM
  3. XIAFLEX [Suspect]
     Active Substance: COLLAGENASE CLOSTRIDIUM HISTOLYTICUM
  4. VITAMINS MVI [Concomitant]
  5. ALLEGRA [Concomitant]
     Active Substance: FEXOFENADINE HYDROCHLORIDE

REACTIONS (7)
  - Injection site mass [None]
  - Dyspareunia [None]
  - Neuralgia [None]
  - Penile pain [None]
  - Penis disorder [None]
  - Injection site haematoma [None]
  - Injection site bruising [None]

NARRATIVE: CASE EVENT DATE: 20170301
